FAERS Safety Report 9518140 (Version 1)
Quarter: 2013Q3

REPORT INFORMATION
  Report Type: Spontaneous
  Country: CH (occurrence: CH)
  Receive Date: 20130912
  Receipt Date: 20130912
  Transmission Date: 20140515
  Serious: Yes (Hospitalization)
  Sender: FDA-Public Use
  Company Number: CH-JNJFOC-20130902247

PATIENT
  Age: 19 Year
  Sex: Female

DRUGS (9)
  1. TOPAMAX [Suspect]
     Indication: PRODUCT USED FOR UNKNOWN INDICATION
     Route: 048
  2. TOPAMAX [Suspect]
     Indication: PRODUCT USED FOR UNKNOWN INDICATION
     Route: 048
     Dates: start: 20130805
  3. TOPAMAX [Suspect]
     Indication: PRODUCT USED FOR UNKNOWN INDICATION
     Route: 048
     Dates: start: 20130718, end: 20130805
  4. DEPAKINE CRONO [Concomitant]
     Route: 065
  5. SERTRALINE [Concomitant]
     Route: 065
  6. SERTRALINE [Concomitant]
     Route: 065
     Dates: start: 20130730
  7. TEMESTA [Concomitant]
     Route: 065
  8. ABILIFY [Concomitant]
     Route: 065
     Dates: end: 20130818
  9. SEROQUEL [Concomitant]
     Route: 065
     Dates: start: 20130813

REACTIONS (3)
  - Obsessive-compulsive personality disorder [Not Recovered/Not Resolved]
  - Condition aggravated [Not Recovered/Not Resolved]
  - Aggression [Unknown]
